FAERS Safety Report 10249019 (Version 1)
Quarter: 2014Q2

REPORT INFORMATION
  Report Type: Spontaneous
  Country: IN (occurrence: IN)
  Receive Date: 20140620
  Receipt Date: 20140620
  Transmission Date: 20141212
  Serious: Yes (Life-Threatening)
  Sender: FDA-Public Use
  Company Number: IN-ASTRAZENECA-2014SE45043

PATIENT
  Age: 51 Year
  Sex: Male
  Weight: 70 kg

DRUGS (8)
  1. BRILINTA [Suspect]
     Indication: ACUTE MYOCARDIAL INFARCTION
     Route: 048
  2. GP2B3A [Suspect]
     Route: 065
  3. THROMBOLYTICS [Suspect]
     Route: 065
  4. DODA [Concomitant]
     Route: 048
  5. BETA BLOCKER [Concomitant]
     Route: 048
  6. ACE INHIBITOR [Concomitant]
     Route: 048
  7. ATORVASTATIN [Concomitant]
     Route: 048
  8. ECOSPRIN [Concomitant]
     Route: 048

REACTIONS (1)
  - Thrombosis in device [Unknown]
